FAERS Safety Report 11445108 (Version 1)
Quarter: 2015Q3

REPORT INFORMATION
  Report Type: Spontaneous
  Country: FR (occurrence: FR)
  Receive Date: 20150902
  Receipt Date: 20150902
  Transmission Date: 20151125
  Serious: Yes (Other)
  Sender: FDA-Public Use
  Company Number: FR-SA-2015SA130725

PATIENT
  Age: 74 Year
  Sex: Male

DRUGS (7)
  1. IRINOTECAN [Suspect]
     Active Substance: IRINOTECAN
     Indication: COLORECTAL CANCER METASTATIC
     Dosage: FREQUENCY: CYCLE
     Route: 042
     Dates: start: 20130719
  2. ZALTRAP [Suspect]
     Active Substance: ZIV-AFLIBERCEPT
     Indication: COLORECTAL CANCER METASTATIC
     Dosage: 4 MG/KG?FREQUENCY: CYCLE
     Route: 042
     Dates: end: 20140117
  3. IRINOTECAN [Suspect]
     Active Substance: IRINOTECAN
     Indication: COLORECTAL CANCER METASTATIC
     Dosage: FREQUENCY: CYCLE
     Route: 042
     Dates: end: 20140117
  4. ZALTRAP [Suspect]
     Active Substance: ZIV-AFLIBERCEPT
     Indication: COLORECTAL CANCER METASTATIC
     Dosage: DOSE: 4 MG/KG?FREQUENCY: CYCLE
     Route: 042
     Dates: start: 20130719
  5. FLUOROURACIL. [Suspect]
     Active Substance: FLUOROURACIL
     Indication: COLORECTAL CANCER METASTATIC
     Dosage: FREQUENCY: CYCLE
     Route: 042
     Dates: start: 20130719
  6. FLUOROURACIL. [Suspect]
     Active Substance: FLUOROURACIL
     Indication: COLORECTAL CANCER METASTATIC
     Dosage: FREQUENCY: CYCLE
     Route: 042
     Dates: end: 20140117
  7. FOLINIC ACID [Concomitant]
     Active Substance: LEUCOVORIN
     Indication: COLORECTAL CANCER METASTATIC
     Route: 042
     Dates: start: 20130719, end: 20140117

REACTIONS (1)
  - Ejection fraction decreased [Not Recovered/Not Resolved]

NARRATIVE: CASE EVENT DATE: 20130925
